FAERS Safety Report 18951314 (Version 1)
Quarter: 2021Q1

REPORT INFORMATION
  Report Type: Spontaneous
  Country: US (occurrence: US)
  Receive Date: 20210228
  Receipt Date: 20210228
  Transmission Date: 20210420
  Serious: No
  Sender: FDA-Public Use
  Company Number: US-ASTRAZENECA-2021A077028

PATIENT
  Sex: Female

DRUGS (1)
  1. DALIRESP [Suspect]
     Active Substance: ROFLUMILAST
     Route: 048

REACTIONS (11)
  - Influenza like illness [Unknown]
  - Back pain [Unknown]
  - Chills [Unknown]
  - Nausea [Unknown]
  - Decreased appetite [Unknown]
  - Insomnia [Unknown]
  - Tremor [Unknown]
  - Hyperhidrosis [Unknown]
  - Pain [Unknown]
  - Feeling abnormal [Unknown]
  - Illness [Unknown]
